FAERS Safety Report 6440404-9 (Version None)
Quarter: 2009Q4

REPORT INFORMATION
  Report Type: 
  Country: None (occurrence: None)
  Receive Date: 20091113
  Receipt Date: 20091113
  Transmission Date: 20100525
  Serious: Yes (Death, Hospitalization)
  Sender: FDA-Public Use
  Company Number: US-BIOGENIDEC-2009BI032944

PATIENT
  Sex: Female

DRUGS (52)
  1. TYSABRI [Suspect]
     Indication: MULTIPLE SCLEROSIS
     Route: 042
     Dates: start: 20061103, end: 20090908
  2. TYSABRI [Suspect]
     Route: 042
     Dates: start: 20050101, end: 20050101
  3. BENADRYL [Concomitant]
     Indication: PREMEDICATION
     Dates: start: 20060101
  4. BENADRYL [Concomitant]
     Route: 048
     Dates: start: 20070101
  5. PREVACID [Concomitant]
  6. DIAZEPAM [Concomitant]
     Indication: ANXIETY
  7. MIRAPEX [Concomitant]
     Indication: RESTLESS LEGS SYNDROME
  8. MIRALAX [Concomitant]
  9. SERAX [Concomitant]
  10. FLOMAX [Concomitant]
     Indication: NEUROGENIC BLADDER
     Route: 048
  11. MAXALT-MLT [Concomitant]
     Indication: MIGRAINE
     Route: 048
  12. KLONOPIN [Concomitant]
     Indication: MUSCLE SPASTICITY
     Route: 048
  13. OXYCONTIN [Concomitant]
     Indication: FIBROMYALGIA
     Route: 048
  14. OXYCONTIN [Concomitant]
  15. OXYCONTIN [Concomitant]
     Route: 048
  16. WELLBUTRIN XL [Concomitant]
     Indication: DEPRESSION
     Route: 048
  17. WELLBUTRIN XL [Concomitant]
     Route: 048
  18. CYMBALTA [Concomitant]
     Indication: DEPRESSION
     Route: 048
  19. CYMBALTA [Concomitant]
     Route: 048
  20. CYMBALTA [Concomitant]
     Route: 048
  21. BACLOFEN [Concomitant]
     Indication: MUSCLE SPASTICITY
     Route: 048
  22. TIZANIDINE HCL [Concomitant]
     Indication: MUSCLE SPASTICITY
     Route: 048
  23. COMPAZINE [Concomitant]
  24. GEODON [Concomitant]
     Dates: start: 20080101
  25. GEODON [Concomitant]
  26. LEVSIN [Concomitant]
  27. AMBIEN CR [Concomitant]
     Indication: SLEEP DISORDER
  28. VICODIN [Concomitant]
     Indication: PAIN
  29. VICODIN [Concomitant]
  30. IMMUNE GLOBULIN INTRAVENOUS (HUMAN) [Concomitant]
     Indication: MULTIPLE SCLEROSIS
     Dates: start: 20070112
  31. REQUIP [Concomitant]
     Indication: RESTLESS LEGS SYNDROME
     Route: 048
     Dates: start: 20070201
  32. TYLENOL (CAPLET) [Concomitant]
     Indication: PREMEDICATION
  33. RHINOCORT [Concomitant]
     Dates: start: 20070101
  34. ZANTAC [Concomitant]
     Dates: start: 20070101
  35. ADVIL [Concomitant]
     Route: 048
     Dates: start: 20070309
  36. ZYRTEC [Concomitant]
     Route: 048
     Dates: start: 20070301
  37. MACROBID [Concomitant]
     Route: 048
     Dates: start: 20070301
  38. DEMEROL [Concomitant]
     Dates: start: 20070101
  39. ROBAXIN [Concomitant]
     Dates: start: 20070101
  40. LORAZEPAM [Concomitant]
     Dates: start: 20070101
  41. PHENAZOPYRIDINE HCL TAB [Concomitant]
     Dates: start: 20071101
  42. HEPARIN [Concomitant]
     Indication: CYSTITIS INTERSTITIAL
  43. FENTANYL-100 [Concomitant]
     Indication: PAIN
     Dates: start: 20080101
  44. OXYCODONE [Concomitant]
     Indication: PAIN
     Dates: start: 20080101
  45. PAXIL [Concomitant]
     Dates: start: 20080101
  46. DETROL [Concomitant]
     Dates: start: 20080301
  47. MARINOL [Concomitant]
     Indication: MULTIPLE SCLEROSIS
     Route: 048
     Dates: start: 20080101
  48. DURAGESIC-100 [Concomitant]
     Indication: PAIN
     Dates: start: 20080101
  49. NORCO [Concomitant]
     Indication: PAIN
     Dates: start: 20080101
  50. COLACE [Concomitant]
     Route: 048
     Dates: start: 20081001
  51. NAPROXEN [Concomitant]
     Route: 048
     Dates: start: 20081201
  52. TRAZODONE HCL [Concomitant]
     Indication: SLEEP DISORDER
     Route: 048
     Dates: start: 20080401

REACTIONS (6)
  - BLADDER DYSFUNCTION [None]
  - FALL [None]
  - MULTIPLE SCLEROSIS RELAPSE [None]
  - PNEUMONIA ASPIRATION [None]
  - PROGRESSIVE MULTIFOCAL LEUKOENCEPHALOPATHY [None]
  - URINARY TRACT INFECTION [None]
